FAERS Safety Report 23967538 (Version 1)
Quarter: 2024Q2

REPORT INFORMATION
  Report Type: Spontaneous
  Country: FR (occurrence: FR)
  Receive Date: 20240612
  Receipt Date: 20240612
  Transmission Date: 20240716
  Serious: Yes (Other)
  Sender: FDA-Public Use
  Company Number: None

PATIENT
  Age: 77 Year
  Sex: Male

DRUGS (9)
  1. VANCOMYCIN [Suspect]
     Active Substance: VANCOMYCIN
     Indication: Parotitis
     Dosage: 2500 MILLIGRAM, QD
     Route: 042
     Dates: start: 20240506, end: 20240509
  2. VANCOMYCIN [Suspect]
     Active Substance: VANCOMYCIN
     Dosage: 750 MILLIGRAM, QH
     Route: 042
     Dates: start: 20240503, end: 20240503
  3. VANCOMYCIN [Suspect]
     Active Substance: VANCOMYCIN
     Dosage: 2000 MILLIGRAM, QD
     Route: 042
     Dates: start: 20240504, end: 20240506
  4. CARTEOLOL HYDROCHLORIDE [Concomitant]
     Active Substance: CARTEOLOL HYDROCHLORIDE
     Dosage: 1 GTT DROPS, QD
     Route: 048
  5. CALCIUM CARBONATE\CHOLECALCIFEROL [Concomitant]
     Active Substance: CALCIUM CARBONATE\CHOLECALCIFEROL
     Dosage: 1 DOSAGE FORM, QD (500 MG/440 UI)
     Route: 048
  6. ENANTONE LP [Concomitant]
     Active Substance: LEUPROLIDE ACETATE
     Dosage: 1 DOSAGE FORM, Q3MONTHS (90 DAYS)
     Route: 030
  7. ERLEADA [Concomitant]
     Active Substance: APALUTAMIDE
     Dosage: 4 DOSAGE FORM, QD
     Route: 048
     Dates: start: 2020
  8. BISOPROLOL [Concomitant]
     Active Substance: BISOPROLOL\BISOPROLOL FUMARATE
     Dosage: 2.5 MILLIGRAM, QD
     Route: 048
     Dates: start: 20240430
  9. ASPIRIN [Concomitant]
     Active Substance: ASPIRIN
     Dosage: 1 DOSAGE FORM, QD
     Route: 048

REACTIONS (2)
  - Lymphangitis [Recovering/Resolving]
  - Superficial vein thrombosis [Recovering/Resolving]

NARRATIVE: CASE EVENT DATE: 20240509
